FAERS Safety Report 7589711-7 (Version None)
Quarter: 2011Q3

REPORT INFORMATION
  Report Type: 
  Country: None (occurrence: None)
  Receive Date: 20110705
  Receipt Date: 20110628
  Transmission Date: 20111222
  Serious: Yes (Hospitalization)
  Sender: FDA-Public Use
  Company Number: FR-TEVA-288759ISR

PATIENT
  Sex: Male

DRUGS (1)
  1. FENOFIBRATE [Suspect]
     Dosage: 200 MILLIGRAM;
     Route: 048
     Dates: start: 20080101, end: 20110531

REACTIONS (3)
  - MOTOR DYSFUNCTION [None]
  - TRISMUS [None]
  - GAIT DISTURBANCE [None]
